FAERS Safety Report 5130163-4 (Version None)
Quarter: 2006Q4

REPORT INFORMATION
  Report Type: 
  Country: None (occurrence: None)
  Receive Date: 20061013
  Receipt Date: 20060920
  Transmission Date: 20070319
  Serious: Yes (Other)
  Sender: FDA-Public Use
  Company Number: 2006-230

PATIENT
  Age: 33 Year
  Sex: Male

DRUGS (5)
  1. CARBOPLATIN [Suspect]
     Indication: SEMINOMA
     Dosage: 1250 MG/M2
  2. TAXOL [Suspect]
     Indication: SEMINOMA
     Dosage: 175 MG/M2  DAYS 1-5
  3. ETOPOSIDE [Suspect]
     Indication: SEMINOMA
     Dosage: 1500 MG/M2 DAYS 1-5
  4. IFOSFAMIDE [Suspect]
     Indication: SEMINOMA
     Dosage: 7.5 MG/M2 DAY 1-5
  5. NEUPOGEN [Suspect]
     Dosage: 9300 UG

REACTIONS (7)
  - ACUTE FEBRILE NEUTROPHILIC DERMATOSIS [None]
  - INJECTION SITE PHLEBITIS [None]
  - PLATELET COUNT DECREASED [None]
  - PLEURAL EFFUSION [None]
  - PULMONARY EMBOLISM [None]
  - STAPHYLOCOCCAL INFECTION [None]
  - STEM CELL TRANSPLANT [None]
